FAERS Safety Report 25179263 (Version 1)
Quarter: 2025Q2

REPORT INFORMATION
  Report Type: Report from Study
  Country: CA (occurrence: CA)
  Receive Date: 20250409
  Receipt Date: 20250409
  Transmission Date: 20250717
  Serious: Yes (Other)
  Sender: SANDOZ
  Company Number: CA-SANDOZ-SDZ2025CA021063

PATIENT
  Sex: Female

DRUGS (1)
  1. HYRIMOZ [Suspect]
     Active Substance: ADALIMUMAB-ADAZ
     Indication: Crohn^s disease
     Dosage: 40 MG, QW
     Route: 058
     Dates: start: 20220728

REACTIONS (9)
  - Crohn^s disease [Unknown]
  - Disease recurrence [Unknown]
  - Photosensitivity reaction [Unknown]
  - General physical health deterioration [Unknown]
  - Osteoarthritis [Unknown]
  - Neck pain [Unknown]
  - Arthralgia [Unknown]
  - Immune system disorder [Unknown]
  - Off label use [Unknown]
